FAERS Safety Report 18968870 (Version 1)
Quarter: 2021Q1

REPORT INFORMATION
  Report Type: Report from Study
  Country: MX (occurrence: MX)
  Receive Date: 20210304
  Receipt Date: 20210304
  Transmission Date: 20210420
  Serious: Yes (Other)
  Sender: FDA-Public Use
  Company Number: NVSC2021MX046746

PATIENT
  Age: 87 Year
  Sex: Female

DRUGS (3)
  1. CO?DIOVAN [Suspect]
     Active Substance: HYDROCHLOROTHIAZIDE\VALSARTAN
     Dosage: 3 DF, QD (160/12.5 MG 2 TABLETS IN THE MORNING AND 1 TABLET AT NIGHT)
     Route: 048
     Dates: start: 20210122
  2. CO?DIOVAN [Suspect]
     Active Substance: HYDROCHLOROTHIAZIDE\VALSARTAN
     Indication: BLOOD PRESSURE INCREASED
     Dosage: 1.5 DF, QD (320/25 MG ONE TABLET IN THE MORNING)
     Route: 048
     Dates: start: 2017
  3. EXFORGE [Suspect]
     Active Substance: AMLODIPINE BESYLATE\VALSARTAN
     Indication: BLOOD PRESSURE INCREASED
     Dosage: 0.5 DF, BID (160/5)
     Route: 048
     Dates: start: 20100111, end: 2017

REACTIONS (7)
  - Product availability issue [Unknown]
  - Product dose omission issue [Unknown]
  - Blood pressure increased [Unknown]
  - Hypertension [Unknown]
  - Arrhythmia [Unknown]
  - General physical health deterioration [Unknown]
  - Syncope [Not Recovered/Not Resolved]

NARRATIVE: CASE EVENT DATE: 20210121
